FAERS Safety Report 6039574-6 (Version None)
Quarter: 2009Q1

REPORT INFORMATION
  Report Type: 
  Country: None (occurrence: None)
  Receive Date: 20090116
  Receipt Date: 20090112
  Transmission Date: 20090719
  Serious: Yes (Hospitalization)
  Sender: FDA-Public Use
  Company Number: US-JNJFOC-20080904129

PATIENT
  Sex: Male
  Weight: 68.04 kg

DRUGS (2)
  1. DURAGESIC-100 [Suspect]
     Indication: PAIN
     Route: 062
  2. OXYCODONE [Concomitant]
     Indication: PAIN
     Route: 048

REACTIONS (5)
  - DRUG ADMINISTRATION ERROR [None]
  - INADEQUATE ANALGESIA [None]
  - OSTEONECROSIS [None]
  - RASH [None]
  - SCAR [None]
